FAERS Safety Report 9190292 (Version 2)
Quarter: 2013Q2

REPORT INFORMATION
  Report Type: Spontaneous
  Country: US (occurrence: US)
  Receive Date: 20130326
  Receipt Date: 20130605
  Transmission Date: 20140414
  Serious: Yes (Death)
  Sender: FDA-Public Use
  Company Number: US-BRISTOL-MYERS SQUIBB COMPANY-18711218

PATIENT
  Age: 80 Year
  Sex: Male

DRUGS (2)
  1. COUMADIN [Suspect]
  2. ADVAIR [Concomitant]

REACTIONS (1)
  - Myocardial infarction [Fatal]
